FAERS Safety Report 5781565-4 (Version None)
Quarter: 2008Q2

REPORT INFORMATION
  Report Type: 
  Country: None (occurrence: None)
  Receive Date: 20080623
  Receipt Date: 20070816
  Transmission Date: 20081010
  Serious: No
  Sender: FDA-Public Use
  Company Number: US-ASTRAZENECA-2007UW19806

PATIENT
  Age: 33 Year
  Sex: Female

DRUGS (2)
  1. RHINOCORT [Suspect]
     Indication: TINNITUS
     Route: 045
     Dates: start: 20070815
  2. PAXI [Concomitant]

REACTIONS (1)
  - INSOMNIA [None]
